FAERS Safety Report 8075201-4 (Version None)
Quarter: 2012Q1

REPORT INFORMATION
  Report Type: 
  Country: None (occurrence: None)
  Receive Date: 20120127
  Receipt Date: 20120123
  Transmission Date: 20120608
  Serious: No
  Sender: FDA-Public Use
  Company Number: US-PFIZER INC-2012005035

PATIENT
  Sex: Female
  Weight: 86.168 kg

DRUGS (3)
  1. TRAZODONE [Concomitant]
     Dosage: UNK
  2. CELEBREX [Suspect]
     Indication: PAIN
     Dosage: 100 MG, 2X/DAY
     Route: 048
     Dates: start: 20111208
  3. CELEBREX [Suspect]

REACTIONS (5)
  - PAIN [None]
  - ARTHRALGIA [None]
  - PAIN IN EXTREMITY [None]
  - GAIT DISTURBANCE [None]
  - JOINT INJURY [None]
